FAERS Safety Report 6837019-7 (Version None)
Quarter: 2010Q3

REPORT INFORMATION
  Report Type: 
  Country: None (occurrence: None)
  Receive Date: 20100713
  Receipt Date: 20070502
  Transmission Date: 20110219
  Serious: No
  Sender: FDA-Public Use
  Company Number: US-PFIZER INC-2007036484

PATIENT
  Sex: Male
  Weight: 106 kg

DRUGS (6)
  1. CHANTIX [Suspect]
     Indication: SMOKING CESSATION THERAPY
     Route: 048
     Dates: start: 20070501
  2. METHADONE HCL [Concomitant]
     Indication: BACK PAIN
     Route: 048
  3. PRAMIPEXOLE DIHYDROCHLORIDE [Concomitant]
     Indication: RESTLESS LEGS SYNDROME
     Route: 048
  4. DIPHENHYDRAMINE [Concomitant]
     Indication: SINUS CONGESTION
     Route: 048
  5. DIPHENHYDRAMINE [Concomitant]
     Indication: HYPERSENSITIVITY
  6. DIPHENHYDRAMINE [Concomitant]
     Indication: SLEEP DISORDER

REACTIONS (2)
  - MIDDLE INSOMNIA [None]
  - PRURITUS [None]
